FAERS Safety Report 9341539 (Version 1)
Quarter: 2013Q2

REPORT INFORMATION
  Report Type: Spontaneous
  Country: IN (occurrence: IN)
  Receive Date: 20130611
  Receipt Date: 20130611
  Transmission Date: 20140414
  Serious: Yes (Hospitalization)
  Sender: FDA-Public Use
  Company Number: IN-GENZYME-THYM-1003856

PATIENT
  Age: 12 Year
  Sex: Male
  Weight: 25 kg

DRUGS (3)
  1. THYMOGLOBULINE [Suspect]
     Indication: RENAL TRANSPLANT
     Dosage: 6 MG/KG, UNK
     Route: 065
     Dates: start: 20130424, end: 20130427
  2. TACROLIMUS [Concomitant]
     Indication: PRODUCT USED FOR UNKNOWN INDICATION
     Dosage: 0.12 MG/KG, QD
     Route: 065
     Dates: start: 20130422
  3. MYCOPHENOLATE MOFETIL [Concomitant]
     Indication: PRODUCT USED FOR UNKNOWN INDICATION
     Dosage: 250 MG, TID
     Route: 065
     Dates: start: 20130422

REACTIONS (1)
  - Kidney transplant rejection [Recovered/Resolved]
